FAERS Safety Report 7556705-7 (Version None)
Quarter: 2011Q2

REPORT INFORMATION
  Report Type: 
  Country: None (occurrence: None)
  Receive Date: 20110620
  Receipt Date: 20110615
  Transmission Date: 20111010
  Serious: Yes (Other)
  Sender: FDA-Public Use
  Company Number: US-PFIZER INC-2011131301

PATIENT
  Sex: Female
  Weight: 61.7 kg

DRUGS (11)
  1. CRESTOR [Concomitant]
     Dosage: 40 MG, UNK
  2. PLAVIX [Concomitant]
     Dosage: 75 MG, UNK
  3. LOPRESSOR [Concomitant]
     Dosage: 50 MG, UNK
  4. CALCIUM [Concomitant]
     Dosage: 500 UNK, UNK
  5. SUTENT [Suspect]
     Dosage: 50 MG, 1X/DAY FOR 28 DAYS
     Route: 048
  6. NITROGLYCERIN [Concomitant]
     Dosage: 2.5 MG, UNK
  7. ALBUTEROL SULFATE AUTOHALER [Concomitant]
     Dosage: UNK
  8. CLARITIN [Concomitant]
     Dosage: 10 MG, UNK
  9. TYLENOL-500 [Concomitant]
     Dosage: 325 MG, UNK
  10. FISH OIL [Concomitant]
     Dosage: 875 MG, UNK
  11. ADVAIR DISKUS 100/50 [Concomitant]
     Dosage: 230/21, UNK

REACTIONS (8)
  - NAUSEA [None]
  - PLATELET COUNT DECREASED [None]
  - ASTHENIA [None]
  - GENERAL PHYSICAL CONDITION ABNORMAL [None]
  - VOMITING [None]
  - OESOPHAGEAL PAIN [None]
  - DIZZINESS [None]
  - CANDIDIASIS [None]
